FAERS Safety Report 8196183-0 (Version None)
Quarter: 2012Q1

REPORT INFORMATION
  Report Type: 
  Country: None (occurrence: None)
  Receive Date: 20120309
  Receipt Date: 20120228
  Transmission Date: 20120608
  Serious: Yes (Life-Threatening)
  Sender: FDA-Public Use
  Company Number: JP-BAYER-2011-123078

PATIENT
  Age: 50 Year
  Sex: Female
  Weight: 60 kg

DRUGS (6)
  1. AMPICILLIN [Concomitant]
     Indication: INFECTION PROPHYLAXIS
     Dosage: 1000 MG, UNK
     Route: 048
     Dates: start: 20091225, end: 20091229
  2. ADONA [Concomitant]
     Indication: HAEMOSTASIS
     Dosage: 60 MG, UNK
     Route: 048
     Dates: start: 20100903, end: 20100913
  3. TRANSAMINE CAP [Concomitant]
     Indication: HAEMOSTASIS
     Dosage: 1500 MG, UNK
     Route: 048
     Dates: start: 20100903, end: 20100913
  4. MIRENA [Suspect]
     Indication: CONTRACEPTION
     Dosage: 20 MCG/24HR, CONT
     Route: 015
     Dates: start: 20091225
  5. MIRENA [Suspect]
     Indication: MENORRHAGIA
  6. LOXONIN [Concomitant]
     Indication: PROPHYLAXIS
     Dosage: 180 MG, UNK
     Route: 048
     Dates: start: 20091225, end: 20091229

REACTIONS (3)
  - BREAST CANCER [None]
  - BREAST CANCER FEMALE [None]
  - PROGESTERONE RECEPTOR ASSAY POSITIVE [None]
